FAERS Safety Report 5271089-5 (Version None)
Quarter: 2007Q1

REPORT INFORMATION
  Report Type: 
  Country: None (occurrence: None)
  Receive Date: 20070321
  Receipt Date: 20070312
  Transmission Date: 20070707
  Serious: Yes (Hospitalization)
  Sender: FDA-Public Use
  Company Number: GB-GLAXOSMITHKLINE-B0461571A

PATIENT
  Age: 36 Year
  Sex: Female

DRUGS (1)
  1. COMBIVIR [Suspect]
     Indication: HIV INFECTION
     Route: 048
     Dates: start: 20050101, end: 20060601

REACTIONS (5)
  - GENITAL ULCERATION [None]
  - HYPERSENSITIVITY [None]
  - LEUKOCYTOCLASTIC VASCULITIS [None]
  - MOUTH ULCERATION [None]
  - STEVENS-JOHNSON SYNDROME [None]
